FAERS Safety Report 15227981 (Version 4)
Quarter: 2020Q3

REPORT INFORMATION
  Report Type: Spontaneous
  Country: ES (occurrence: ES)
  Receive Date: 20180801
  Receipt Date: 20181026
  Transmission Date: 20201104
  Serious: Yes (Death)
  Sender: FDA-Public Use
  Company Number: ES-ALLERGAN-1837947US

PATIENT
  Age: 51 Year
  Sex: Male

DRUGS (18)
  1. CEFTOLOZANE;TAZOBACTAM [Suspect]
     Active Substance: CEFTOLOZANE SULFATE\TAZOBACTAM SODIUM
     Indication: EMPYEMA
  2. MEROPENEM. [Suspect]
     Active Substance: MEROPENEM
     Indication: PNEUMONIA
     Dosage: UNK
     Route: 042
     Dates: start: 20170105
  3. AMIKACIN. [Suspect]
     Active Substance: AMIKACIN
     Indication: PNEUMONIA
     Dosage: UNK (NEBULISED)
     Route: 042
     Dates: start: 20170105
  4. AMIKACIN. [Suspect]
     Active Substance: AMIKACIN
     Indication: EMPYEMA
  5. INSULIN [Concomitant]
     Active Substance: INSULIN NOS
  6. CEFTAZIDIME;AVIBACTAM ? BP [Suspect]
     Active Substance: AVIBACTAM SODIUM\CEFTAZIDIME
     Indication: PNEUMONIA
     Dosage: UNK
     Route: 065
     Dates: start: 20170105
  7. CEFTOLOZANE;TAZOBACTAM [Suspect]
     Active Substance: CEFTOLOZANE SULFATE\TAZOBACTAM SODIUM
     Indication: PNEUMONIA
     Dosage: UNK
     Route: 065
     Dates: start: 20170105
  8. NOREPINEPHRINE. [Concomitant]
     Active Substance: NOREPINEPHRINE
  9. INTRAVENOUS FLUIDS (SALINE) [Concomitant]
     Route: 042
  10. MEROPENEM. [Suspect]
     Active Substance: MEROPENEM
     Indication: EVIDENCE BASED TREATMENT
  11. SOMATOSTATIN [Concomitant]
     Active Substance: SOMATOSTATIN
  12. MAGNESIUM SULPHATE [Concomitant]
     Active Substance: MAGNESIUM SULFATE
  13. CEFTAZIDIME;AVIBACTAM ? BP [Suspect]
     Active Substance: AVIBACTAM SODIUM\CEFTAZIDIME
     Indication: EMPYEMA
  14. MEROPENEM. [Suspect]
     Active Substance: MEROPENEM
     Indication: EMPYEMA
  15. FLUCONAZOLE. [Concomitant]
     Active Substance: FLUCONAZOLE
  16. PANTOPRAZOLE [Concomitant]
     Active Substance: PANTOPRAZOLE
  17. TEICOPLANIN [Concomitant]
     Active Substance: TEICOPLANIN
  18. AMIKACIN. [Suspect]
     Active Substance: AMIKACIN
     Indication: EVIDENCE BASED TREATMENT

REACTIONS (1)
  - Drug ineffective [Fatal]

NARRATIVE: CASE EVENT DATE: 20170105
